FAERS Safety Report 24151630 (Version 1)
Quarter: 2024Q3

REPORT INFORMATION
  Report Type: Spontaneous
  Country: US (occurrence: US)
  Receive Date: 20240730
  Receipt Date: 20240730
  Transmission Date: 20241017
  Serious: No
  Sender: PERRIGO
  Company Number: US-PERRIGO-24US002561

PATIENT

DRUGS (4)
  1. LORATADINE [Suspect]
     Active Substance: LORATADINE
     Indication: Rhinorrhoea
     Dosage: UNKNOWN, UNKNOWN
     Route: 048
  2. LORATADINE [Suspect]
     Active Substance: LORATADINE
     Indication: Ear pruritus
  3. LORATADINE [Suspect]
     Active Substance: LORATADINE
     Indication: Throat irritation
  4. LORATADINE [Suspect]
     Active Substance: LORATADINE
     Indication: Pruritus

REACTIONS (5)
  - Dry skin [Unknown]
  - Skin irritation [Unknown]
  - Nasal dryness [Unknown]
  - Nasal discomfort [Unknown]
  - Drug effective for unapproved indication [Unknown]
